FAERS Safety Report 5753590-0 (Version None)
Quarter: 2008Q2

REPORT INFORMATION
  Report Type: 
  Country: None (occurrence: None)
  Receive Date: 20080527
  Receipt Date: 20080527
  Transmission Date: 20081010
  Serious: Yes (Other)
  Sender: FDA-Public Use
  Company Number: None

PATIENT
  Age: 4 Year
  Sex: Female
  Weight: 13.6079 kg

DRUGS (1)
  1. SINGULAIR [Suspect]
     Indication: ASTHMA
     Dosage: 4MG DAILY PO
     Route: 048
     Dates: start: 20070301, end: 20080528

REACTIONS (9)
  - ABNORMAL BEHAVIOUR [None]
  - AGGRESSION [None]
  - ANOREXIA [None]
  - ANXIETY [None]
  - CONVERSION DISORDER [None]
  - FATIGUE [None]
  - HYPOGLYCAEMIA [None]
  - INSOMNIA [None]
  - PAIN IN EXTREMITY [None]
